FAERS Safety Report 14387381 (Version 1)
Quarter: 2018Q1

REPORT INFORMATION
  Report Type: Spontaneous
  Country: US (occurrence: US)
  Receive Date: 20180115
  Receipt Date: 20180115
  Transmission Date: 20180509
  Serious: Yes (Other)
  Sender: FDA-Public Use
  Company Number: US-MYLANLABS-2018M1001598

PATIENT
  Age: 6 Year
  Sex: Female

DRUGS (7)
  1. VINCRISTINE [Concomitant]
     Active Substance: VINCRISTINE
     Indication: CHOROID PLEXUS CARCINOMA
     Dosage: 1.5 MG/M2 WEEKLY
     Route: 065
  2. LEUCOVORIN                         /00566701/ [Concomitant]
     Active Substance: LEUCOVORIN
     Indication: CHOROID PLEXUS CARCINOMA
     Dosage: WITH 5 G/M2 METHOTREXATE AT 36H
     Route: 065
  3. CYTARABINE. [Suspect]
     Active Substance: CYTARABINE
     Indication: CHOROID PLEXUS CARCINOMA
     Dosage: 40 MG, UNK
     Route: 050
  4. METHOTREXATE. [Concomitant]
     Active Substance: METHOTREXATE
     Indication: CHOROID PLEXUS CARCINOMA
     Dosage: 5 G/M2 WITH FOLINIC ACID RESCUE AT 36H
     Route: 042
  5. HYDROCORTISONE. [Concomitant]
     Active Substance: HYDROCORTISONE
     Indication: CHOROID PLEXUS CARCINOMA
     Dosage: 15 MG
     Route: 065
  6. METHOTREXATE. [Concomitant]
     Active Substance: METHOTREXATE
     Dosage: 75 MG/M2 IV X1
     Route: 042
  7. METHOTREXATE. [Concomitant]
     Active Substance: METHOTREXATE
     Dosage: 15 MG/M2 Q6 HRS UNTIL METHOTREXATE LEVEL{0.1MICROM
     Route: 042

REACTIONS (1)
  - Arachnoiditis [Recovered/Resolved]
